FAERS Safety Report 6175893-0 (Version None)
Quarter: 2009Q2

REPORT INFORMATION
  Report Type: 
  Country: None (occurrence: None)
  Receive Date: 20090501
  Receipt Date: 20090422
  Transmission Date: 20091009
  Serious: Yes (Life-Threatening, Hospitalization)
  Sender: FDA-Public Use
  Company Number: FR-PFIZER INC-2009201354

PATIENT

DRUGS (4)
  1. TAHOR [Suspect]
     Indication: HYPERCHOLESTEROLAEMIA
     Route: 048
  2. XYREM [Suspect]
     Indication: NARCOLEPSY
     Dosage: 2.25 G, UNK
     Route: 048
     Dates: start: 20081017, end: 20081101
  3. KARDEGIC [Suspect]
     Route: 048
  4. VASTAREL [Suspect]
     Route: 048

REACTIONS (1)
  - MYOCARDIAL INFARCTION [None]
